FAERS Safety Report 8318797-7 (Version None)
Quarter: 2012Q2

REPORT INFORMATION
  Report Type: 
  Country: None (occurrence: None)
  Receive Date: 20120427
  Receipt Date: 20120423
  Transmission Date: 20120825
  Serious: Yes (Other)
  Sender: FDA-Public Use
  Company Number: US-BAYER-2012-040783

PATIENT
  Sex: Male

DRUGS (1)
  1. ALEVE [Suspect]
     Route: 048

REACTIONS (1)
  - SWELLING FACE [None]
